FAERS Safety Report 16658999 (Version 4)
Quarter: 2020Q3

REPORT INFORMATION
  Report Type: Other
  Country: GB (occurrence: GB)
  Receive Date: 20190801
  Receipt Date: 20200813
  Transmission Date: 20201102
  Serious: Yes (Death, Other)
  Sender: FDA-Public Use
  Company Number: GB-CELLTRION INC.-2019GB023216

PATIENT

DRUGS (74)
  1. TAMOXIFEN [Suspect]
     Active Substance: TAMOXIFEN
     Indication: BREAST CANCER METASTATIC
     Dosage: 20 MG, DAILY
     Route: 048
     Dates: start: 20180704, end: 20180915
  2. TAMOXIFEN [Suspect]
     Active Substance: TAMOXIFEN
     Indication: HER2 POSITIVE BREAST CANCER
  3. PERTUZUMAB. [Suspect]
     Active Substance: PERTUZUMAB
     Dosage: 420 MG, EVERY 3 WEEKS, MAINTAINENCE DOSE, DISCONTINUED DUE TO DISEASE PROGRESSION AND FURTHER ANTICA
     Route: 042
     Dates: start: 20160225, end: 20180704
  4. LOPERAMIDE [Concomitant]
     Active Substance: LOPERAMIDE
     Dosage: 4 MG, PRN
     Route: 048
     Dates: start: 201607, end: 201703
  5. ZOLEDRONIC ACID [Concomitant]
     Active Substance: ZOLEDRONIC ACID
     Dosage: EVERY 3?4WEEKS FOR 9 CYCLES THEN 3 MONTS
     Route: 042
     Dates: start: 20160414, end: 20170112
  6. BENZYDAMINE HYDROCHLORIDE [Concomitant]
     Active Substance: BENZYDAMINE HYDROCHLORIDE
     Indication: GLOSSODYNIA
  7. BUDESONIDE. [Concomitant]
     Active Substance: BUDESONIDE
     Dosage: 9 MG, DAILY
     Route: 048
     Dates: start: 20190403
  8. GLICLAZIDE [Concomitant]
     Active Substance: GLICLAZIDE
     Dosage: 80 MG, DAILY
     Route: 048
     Dates: start: 201809, end: 20190424
  9. GLICLAZIDE [Concomitant]
     Active Substance: GLICLAZIDE
     Dosage: 40 MG, DAILY
     Route: 048
     Dates: start: 20190620, end: 20190705
  10. MAGNESIUM GLYCEROPHOSPHATE [Concomitant]
     Active Substance: MAGNESIUM GLYCEROPHOSPHATE
     Indication: HYPOMAGNESAEMIA
     Dosage: 4 MMOL EVERY 0.33 DAY
     Route: 048
     Dates: start: 20160526, end: 20160530
  11. TRASTUZUMAB EMTANSINE [Suspect]
     Active Substance: ADO-TRASTUZUMAB EMTANSINE
     Indication: BREAST CANCER METASTATIC
     Dosage: 220 MG, EVERY 3 WEEKS, DISCONTINUED DUE TO DISEASE PROGRESSION AND FURTHER ANTICANCER TREATMENT
     Route: 042
     Dates: start: 20180928, end: 20190315
  12. LOPERAMIDE [Concomitant]
     Active Substance: LOPERAMIDE
     Indication: PROPHYLAXIS
     Dosage: 2 MG, PRN AS NEEDED
     Route: 048
     Dates: start: 20160225
  13. TRAMADOL HYDROCHLORIDE. [Concomitant]
     Active Substance: TRAMADOL HYDROCHLORIDE
     Dosage: 50 MG EVERY 0.25 DAY
     Route: 048
     Dates: start: 20160217
  14. SITAGLIPTIN [Concomitant]
     Active Substance: SITAGLIPTIN
     Dosage: 100 MG, DAILY
     Route: 048
  15. CHLORHEXIDINE GLUCONATE. [Concomitant]
     Active Substance: CHLORHEXIDINE GLUCONATE
     Indication: PROPHYLAXIS
     Dosage: 0.2 %, 0.25/DAY
     Route: 048
     Dates: start: 20160225
  16. DOCUSATE SODIUM. [Concomitant]
     Active Substance: DOCUSATE SODIUM
     Dosage: 400 MG, DAILY
     Route: 048
  17. POTASSIUM BICARBONATE;SODIUM BICARBONATE;SODIUM PHOSPHATE MONOBASIC (A [Concomitant]
     Indication: HYPOPHOSPHATAEMIA
     Dosage: 2 TABLETS FOR 0.33/DAY
     Route: 048
     Dates: start: 20190611, end: 20190614
  18. POTASSIUM CHLORIDE. [Concomitant]
     Active Substance: POTASSIUM CHLORIDE
     Indication: BLOOD POTASSIUM DECREASED
     Dosage: 1 MMOL/L AS NECESSARY
     Route: 042
     Dates: start: 20190611, end: 20190620
  19. AMLODIPINE [Concomitant]
     Active Substance: AMLODIPINE BESYLATE
     Indication: HYPERTENSION
     Dosage: 5 MG, DAILY
     Route: 048
  20. DIPROBASE [PARAFFIN, LIQUID;WHITE SOFT PARAFFIN] [Concomitant]
     Indication: RASH PRURITIC
  21. PERTUZUMAB. [Suspect]
     Active Substance: PERTUZUMAB
     Indication: BREAST CANCER METASTATIC
     Dosage: 840 MG, EVERY 3 WEEKS, LOADING DOSE
     Route: 042
     Dates: start: 20160225, end: 20160225
  22. LETROZOLE. [Suspect]
     Active Substance: LETROZOLE
     Indication: PRODUCT USED FOR UNKNOWN INDICATION
     Dosage: 2.5 MG, DAILY
     Route: 048
     Dates: start: 20160413, end: 20180704
  23. ZOPICLONE [Concomitant]
     Active Substance: ZOPICLONE
     Dosage: 3.75 MG, DAILY
     Route: 048
     Dates: start: 20160217
  24. METFORMIN [Concomitant]
     Active Substance: METFORMIN HYDROCHLORIDE
     Dosage: 1000 MG EVERY 0.5 DAY
     Route: 065
  25. TRIMETHOPRIM. [Concomitant]
     Active Substance: TRIMETHOPRIM
     Indication: URINARY TRACT INFECTION
     Dosage: UNK
     Route: 048
     Dates: start: 20190412, end: 20190414
  26. CINACALCET. [Concomitant]
     Active Substance: CINACALCET
     Indication: HYPERCALCAEMIA OF MALIGNANCY
     Dosage: 30 MG, DAILY
     Route: 048
     Dates: start: 20190413
  27. TRASTUZUMAB (UNKNOWN) [Suspect]
     Active Substance: TRASTUZUMAB
     Indication: HER2 POSITIVE BREAST CANCER
     Dosage: 525 MG, EVERY 3 WEEKS, LOADING DOSE
     Route: 041
     Dates: start: 20160225, end: 20160225
  28. TRASTUZUMAB (UNKNOWN) [Suspect]
     Active Substance: TRASTUZUMAB
     Dosage: 350 MG, EVERY 3 WEEKS, DISCONTINUED DUE TO DISEASE PROGRESSION AND FURTHER ANTICANCER TREATMENT
     Route: 042
     Dates: start: 20160707, end: 20180822
  29. TRASTUZUMAB EMTANSINE [Suspect]
     Active Substance: ADO-TRASTUZUMAB EMTANSINE
     Indication: HER2 POSITIVE BREAST CANCER
  30. COCODAMOL [Concomitant]
     Active Substance: ACETAMINOPHEN\CODEINE PHOSPHATE
     Indication: BACK PAIN
     Dosage: 2 TABLET, PRN
     Route: 048
     Dates: start: 20160707
  31. DOMPERIDONE [Concomitant]
     Active Substance: DOMPERIDONE
     Dosage: 10 MG EVERY 0.33 DAY
     Route: 048
     Dates: start: 20160225
  32. BUDESONIDE. [Concomitant]
     Active Substance: BUDESONIDE
     Dosage: 9 MG, DAILY
     Route: 048
     Dates: start: 20190403, end: 20190523
  33. DENOSUMAB [Concomitant]
     Active Substance: DENOSUMAB
     Dosage: 120 MG EVERY 3?4 WEEKS
     Route: 058
     Dates: start: 20180110, end: 20190426
  34. SANDO K [POTASSIUM BICARBONATE;POTASSIUM CHLORIDE] [Concomitant]
     Active Substance: POTASSIUM BICARBONATE\POTASSIUM CHLORIDE
     Dosage: EFFERVESCENT 2 TABLETS EVERY 0.5 DAY
     Route: 048
     Dates: start: 20160322, end: 20160326
  35. TINZAPARIN [Concomitant]
     Active Substance: TINZAPARIN
     Dosage: 11000 UNIT, DAILY
     Route: 058
     Dates: start: 20180915, end: 20181128
  36. OCTASA [Concomitant]
     Active Substance: MESALAMINE
     Indication: GASTROINTESTINAL MOTILITY DISORDER
     Dosage: 800 MG EVERY 0.33 DAY
     Route: 048
     Dates: start: 20170523, end: 2017
  37. MACROGOL [Concomitant]
     Active Substance: POLYETHYLENE GLYCOLS
     Dosage: 2 DAILY, SACHET
     Route: 065
  38. MACROGOL [Concomitant]
     Active Substance: POLYETHYLENE GLYCOLS
     Dosage: SACHET EVERY 0.5 DAY
  39. TRASTUZUMAB (UNKNOWN) [Suspect]
     Active Substance: TRASTUZUMAB
     Dosage: 400 MG, EVERY 3 WEEKS, MAINTENANCE DOSE, MODIFIED DUE TO DECREASE IN WEIGHT
     Route: 042
     Dates: start: 20160225, end: 20160617
  40. TRASTUZUMAB (UNKNOWN) [Suspect]
     Active Substance: TRASTUZUMAB
     Dosage: 350 MG, EVERY 3 WEEKS, DISCONTINUED DUE TO DISEASE PROGRESSION AND FURTHER ANTICANCER TREATMENT
     Route: 042
     Dates: start: 20160707, end: 20180822
  41. NERATINIB [Suspect]
     Active Substance: NERATINIB
     Indication: PRODUCT USED FOR UNKNOWN INDICATION
     Dosage: 240 MG, DAILY
     Route: 048
     Dates: start: 20190403
  42. FEMARA [Suspect]
     Active Substance: LETROZOLE
     Indication: HER2 POSITIVE BREAST CANCER
     Dosage: 2.5 MG, DAILY, DISCONTINUED DUE TO DISEASE PROGRESSION AND FURTHER ANTICANCER TREATMENT
     Route: 048
     Dates: start: 20160413, end: 20180704
  43. MACROGOL COMP [Concomitant]
     Dosage: UNK, BID
     Route: 048
  44. ZOLEDRONIC ACID [Concomitant]
     Active Substance: ZOLEDRONIC ACID
     Dosage: 3.5 MG
     Route: 042
     Dates: start: 20190408, end: 20190408
  45. ATORVASTATIN [Concomitant]
     Active Substance: ATORVASTATIN
     Dosage: 20 MG, DAILY
     Route: 048
  46. CALCICHEW D3 FORTE [Concomitant]
     Active Substance: CALCIUM\CHOLECALCIFEROL
     Dosage: 1 TABLET
     Route: 048
     Dates: start: 20160323
  47. METOCLOPRAMIDE. [Concomitant]
     Active Substance: METOCLOPRAMIDE
     Dosage: 30 MG, DAILY
     Route: 048
  48. METOCLOPRAMIDE. [Concomitant]
     Active Substance: METOCLOPRAMIDE
     Dosage: 10 MG EVERY 0.33 DAY
     Route: 048
  49. PHOSPHATE SANDOZ [Concomitant]
     Active Substance: SODIUM PHOSPHATE, MONOBASIC, ANHYDROUS
     Indication: BLOOD PHOSPHORUS DECREASED
     Dosage: UNK
     Route: 048
     Dates: start: 20190423, end: 20190425
  50. TRASTUZUMAB (UNKNOWN) [Suspect]
     Active Substance: TRASTUZUMAB
     Dosage: 400 MG, EVERY 3 WEEKS, MAINTENANCE DOSE, MODIFIED DUE TO DECREASE IN WEIGHT
     Route: 042
     Dates: start: 20160225, end: 20160617
  51. NERATINIB [Suspect]
     Active Substance: NERATINIB
     Indication: HER2 POSITIVE BREAST CANCER
  52. PERTUZUMAB. [Suspect]
     Active Substance: PERTUZUMAB
     Indication: HER2 POSITIVE BREAST CANCER
     Dosage: 840 MG, EVERY 3 WEEKS, LOADING DOSE
     Route: 042
     Dates: start: 20160225, end: 20160225
  53. ZOLEDRONIC ACID [Concomitant]
     Active Substance: ZOLEDRONIC ACID
     Dosage: 3 MG
     Route: 042
     Dates: start: 20170628, end: 20171220
  54. RIVAROXABAN [Concomitant]
     Active Substance: RIVAROXABAN
     Indication: PULMONARY EMBOLISM
     Dosage: 1 UNK, DAILY
     Route: 048
     Dates: start: 20181128
  55. DOCUSATE SODIUM. [Concomitant]
     Active Substance: DOCUSATE SODIUM
     Dosage: 200 MG EVERY 0.5 DAY
     Route: 048
  56. POTASSIUM CHLORIDE. [Concomitant]
     Active Substance: POTASSIUM CHLORIDE
     Dosage: EVERY 3?4WEEKS FOR 9 CYCLES THEN 3 MONTS
     Route: 042
     Dates: start: 20190611, end: 20190620
  57. DENOSUMAB [Concomitant]
     Active Substance: DENOSUMAB
     Dosage: 120 MG
     Route: 058
     Dates: start: 20180110
  58. TRASTUZUMAB (UNKNOWN) [Suspect]
     Active Substance: TRASTUZUMAB
     Dosage: 350 MG, EVERY 3 WEEKS, DISCONTINUED DUE TO DISEASE PROGRESSION AND FURTHER ANTICANCER TREATMENT
     Route: 042
     Dates: start: 20160707, end: 20180822
  59. TAXOTERE [Suspect]
     Active Substance: DOCETAXEL
     Indication: HER2 POSITIVE BREAST CANCER
     Dosage: 65 MG, EVERY 3 WEEKS
     Route: 042
     Dates: start: 20160226, end: 20160226
  60. PERTUZUMAB. [Suspect]
     Active Substance: PERTUZUMAB
     Dosage: 420 MG, EVERY 3 WEEKS, MAINTAINENCE DOSE, DISCONTINUED DUE TO DISEASE PROGRESSION AND FURTHER ANTICA
     Route: 042
     Dates: start: 20160225, end: 20180704
  61. DOCETAXEL. [Suspect]
     Active Substance: DOCETAXEL
     Indication: BREAST CANCER METASTATIC
     Dosage: 65 MG, EVERY 3 WEEKS
     Route: 042
     Dates: start: 20160226, end: 20160226
  62. CANDESARTAN. [Concomitant]
     Active Substance: CANDESARTAN
     Dosage: 8 MG, DAILY
     Route: 048
  63. ZOLEDRONIC ACID [Concomitant]
     Active Substance: ZOLEDRONIC ACID
     Indication: PROPHYLAXIS
     Dosage: 3.3 MG, MONTHLY
     Route: 042
     Dates: start: 20160226
  64. ZOLEDRONIC ACID [Concomitant]
     Active Substance: ZOLEDRONIC ACID
     Dosage: 3.3 MG
     Route: 042
     Dates: start: 20170209, end: 20170323
  65. ZOLEDRONIC ACID [Concomitant]
     Active Substance: ZOLEDRONIC ACID
     Dosage: 3 MG
     Route: 042
     Dates: start: 20190510, end: 20190529
  66. DEXAMETHASONE. [Concomitant]
     Active Substance: DEXAMETHASONE
     Indication: PROPHYLAXIS
     Dosage: 8 MG, EVERY 0.5 DAY
     Route: 048
     Dates: start: 20160225
  67. OCTASA [Concomitant]
     Active Substance: MESALAMINE
     Dosage: 2400 MG, DAILY
     Route: 048
     Dates: start: 20170523, end: 2017
  68. LINAGLIPTIN [Concomitant]
     Active Substance: LINAGLIPTIN
     Dosage: 5 MG, DAILY
     Route: 048
     Dates: start: 201809, end: 201905
  69. TRASTUZUMAB (UNKNOWN) [Suspect]
     Active Substance: TRASTUZUMAB
     Indication: BREAST CANCER METASTATIC
     Dosage: 525 MG, EVERY 3 WEEKS, LOADING DOSE
     Route: 041
     Dates: start: 20160225, end: 20160225
  70. TRASTUZUMAB (UNKNOWN) [Suspect]
     Active Substance: TRASTUZUMAB
     Dosage: 525 MG, EVERY 3 WEEKS, LOADING DOSE
     Route: 041
     Dates: start: 20160225, end: 20160225
  71. TRASTUZUMAB (UNKNOWN) [Suspect]
     Active Substance: TRASTUZUMAB
     Dosage: 400 MG, EVERY 3 WEEKS, MAINTENANCE DOSE, MODIFIED DUE TO DECREASE IN WEIGHT
     Route: 042
     Dates: start: 20160225, end: 20160617
  72. GLICLAZIDE [Concomitant]
     Active Substance: GLICLAZIDE
     Dosage: 80 MG, DAILY
     Route: 048
     Dates: start: 20190425, end: 201905
  73. AMLODIPINE [Concomitant]
     Active Substance: AMLODIPINE BESYLATE
     Dosage: 5 MG, DAILY
     Route: 048
     Dates: start: 20180915, end: 20190529
  74. ACTRAPID [Concomitant]
     Active Substance: INSULIN HUMAN
     Dosage: UNK
     Route: 058
     Dates: start: 20190620, end: 20190705

REACTIONS (18)
  - Death [Fatal]
  - Weight decreased [Not Recovered/Not Resolved]
  - Diarrhoea [Recovered/Resolved]
  - Diarrhoea [Recovered/Resolved]
  - Rash pruritic [Recovered/Resolved]
  - Diarrhoea [Recovered/Resolved]
  - Cholelithiasis [Not Recovered/Not Resolved]
  - Rectal haemorrhage [Not Recovered/Not Resolved]
  - Hypomagnesaemia [Recovered/Resolved]
  - Urinary tract infection [Recovered/Resolved]
  - Weight decreased [Recovered/Resolved]
  - Vomiting [Recovered/Resolved]
  - Acute kidney injury [Recovered/Resolved]
  - Back pain [Not Recovered/Not Resolved]
  - Diarrhoea [Recovered/Resolved]
  - Diarrhoea [Recovered/Resolved]
  - Disease progression [Fatal]
  - Decreased appetite [Not Recovered/Not Resolved]

NARRATIVE: CASE EVENT DATE: 20160323
